FAERS Safety Report 8832219 (Version 2)
Quarter: 2012Q4

REPORT INFORMATION
  Report Type: 
  Country: JP (occurrence: JP)
  Receive Date: 20121009
  Receipt Date: 20121119
  Transmission Date: 20130627
  Serious: Yes (Other)
  Sender: FDA-Public Use
  Company Number: JP-ASTRAZENECA-2012SE75696

PATIENT
  Age: 16 Year
  Sex: Female
  Weight: 47 kg

DRUGS (5)
  1. REMIFENTANIL HYDROCHLORIDE [Concomitant]
     Indication: INDUCTION AND MAINTENANCE OF ANAESTHESIA
     Route: 065
  2. ROCURONIUM BROMIDE [Concomitant]
     Indication: INDUCTION AND MAINTENANCE OF ANAESTHESIA
     Route: 065
  3. FENTANYL [Concomitant]
     Indication: POSTOPERATIVE ANALGESIA
     Route: 065
  4. ANAPEINE [Suspect]
     Indication: POSTOPERATIVE ANALGESIA
     Route: 053
  5. PROPOFOL [Concomitant]
     Indication: INDUCTION AND MAINTENANCE OF ANAESTHESIA
     Route: 065

REACTIONS (4)
  - Delayed recovery from anaesthesia [Recovered/Resolved]
  - Eye movement disorder [Recovered/Resolved]
  - Toxicity to various agents [Recovered/Resolved]
  - Tremor [Recovered/Resolved]
